FAERS Safety Report 12242634 (Version 1)
Quarter: 2016Q2

REPORT INFORMATION
  Report Type: Spontaneous
  Country: US (occurrence: US)
  Receive Date: 20160406
  Receipt Date: 20160406
  Transmission Date: 20160815
  Serious: No
  Sender: FDA-Public Use
  Company Number: US-BAYER-2016-065063

PATIENT
  Age: 74 Year
  Sex: Female
  Weight: 58.5 kg

DRUGS (2)
  1. ALEVE [Suspect]
     Active Substance: NAPROXEN SODIUM
     Indication: MYALGIA
     Dosage: UNK
  2. ALEVE [Suspect]
     Active Substance: NAPROXEN SODIUM
     Indication: MYALGIA
     Dosage: 1 DF, BID
     Route: 048
     Dates: start: 2016, end: 2016

REACTIONS (3)
  - Abdominal pain upper [None]
  - Drug ineffective [None]
  - Off label use [None]

NARRATIVE: CASE EVENT DATE: 2016
